FAERS Safety Report 4293674-X (Version None)
Quarter: 2004Q1

REPORT INFORMATION
  Report Type: 
  Country: None (occurrence: None)
  Receive Date: 20040212
  Receipt Date: 20040123
  Transmission Date: 20041129
  Serious: Yes (Life-Threatening, Hospitalization)
  Sender: FDA-Public Use
  Company Number: 200410152JP

PATIENT
  Age: 66 Year
  Sex: Male

DRUGS (8)
  1. DAONIL [Suspect]
     Indication: DIABETES MELLITUS
     Route: 048
     Dates: start: 20020515, end: 20020525
  2. CEFAZOLIN [Suspect]
     Indication: BACTERIAL INFECTION
     Route: 041
     Dates: start: 20020515, end: 20020516
  3. ATARAX [Suspect]
     Indication: ANXIETY
     Route: 042
     Dates: start: 20020516, end: 20020516
  4. PHENOBAL [Suspect]
     Indication: INSOMNIA
     Route: 042
     Dates: start: 20020516, end: 20020516
  5. DIAZEPAM [Suspect]
     Indication: ANXIETY
     Route: 048
     Dates: start: 20020515, end: 20020524
  6. ZYLORIC [Suspect]
     Indication: GOUT
     Route: 048
     Dates: start: 20020515, end: 20020524
  7. KINEDAK [Concomitant]
     Indication: DIABETES MELLITUS
     Route: 048
     Dates: start: 20020515, end: 20020524
  8. CALSLOT [Concomitant]
     Indication: HYPERTENSION

REACTIONS (3)
  - BALANOPOSTHITIS [None]
  - OCULOMUCOCUTANEOUS SYNDROME [None]
  - STEVENS-JOHNSON SYNDROME [None]
